FAERS Safety Report 7574448-0 (Version None)
Quarter: 2011Q2

REPORT INFORMATION
  Report Type: 
  Country: None (occurrence: None)
  Receive Date: 20110627
  Receipt Date: 20110512
  Transmission Date: 20111010
  Serious: Yes (Hospitalization, Other)
  Sender: FDA-Public Use
  Company Number: US-BAYER-201036938NA

PATIENT
  Age: 43 Year
  Sex: Female
  Weight: 65.76 kg

DRUGS (36)
  1. GLUCOPHAGE [Concomitant]
     Indication: DIABETES MELLITUS
     Dosage: 500 MG, QD
  2. PROZAC [Concomitant]
     Indication: ANXIETY
  3. TOPROL-XL [Concomitant]
     Indication: HYPERTENSION
     Dosage: DAILY
  4. FLUOXETINE HCL [Concomitant]
  5. ZOFRAN [Concomitant]
  6. ARTHRITIS MEDICATION (NOS) [Concomitant]
  7. COUMADIN [Concomitant]
  8. DIFLUCAN [Concomitant]
  9. VALIUM [Concomitant]
  10. VITAMIN B-12 [Concomitant]
  11. ULTRAM [Concomitant]
  12. TETRACYCLINE [Concomitant]
  13. TYGACIL [Concomitant]
  14. YASMIN [Suspect]
     Indication: MENORRHAGIA
     Dosage: 1 TAB / DAY
     Route: 048
     Dates: start: 20060201, end: 20070101
  15. YAZ [Suspect]
     Indication: MENORRHAGIA
     Dosage: 1 TAB / DAY
     Route: 048
     Dates: start: 20070401, end: 20071001
  16. PROZAC [Concomitant]
     Indication: DEPRESSION
  17. ZETIA [Concomitant]
     Indication: BLOOD CHOLESTEROL INCREASED
     Dosage: 10 MG, HS
  18. OXYCONTIN [Concomitant]
  19. ROXICODONE [Concomitant]
  20. LYRICA [Concomitant]
  21. COMINOX [Concomitant]
  22. INSULIN [Concomitant]
     Indication: TYPE 2 DIABETES MELLITUS
     Dosage: DRIP
  23. YASMIN [Suspect]
     Indication: PREMENSTRUAL SYNDROME
  24. YAZ [Suspect]
     Indication: PREMENSTRUAL SYNDROME
     Dosage: 1 TAB / DAY
     Dates: start: 20081001, end: 20090108
  25. PREVACID [Concomitant]
     Indication: GASTROOESOPHAGEAL REFLUX DISEASE
  26. LOVENOX [Concomitant]
  27. PROPOX-N [Concomitant]
  28. XANAX [Concomitant]
  29. CASPOFUNGIN ACETATE [Concomitant]
  30. TRICOR [Concomitant]
     Indication: BLOOD CHOLESTEROL INCREASED
  31. AMBIEN [Concomitant]
     Indication: SLEEP DISORDER
     Dosage: DAILY
  32. ZOLPIDEM [Concomitant]
  33. LEVAQUIN [Concomitant]
  34. HYZAAR [Concomitant]
     Indication: HYPERTENSION
     Dosage: DAILY
  35. NEXIUM [Concomitant]
  36. PHENERGAN HCL [Concomitant]
     Indication: PAIN

REACTIONS (15)
  - SPLENIC INFARCTION [None]
  - SPLENECTOMY [None]
  - SMALL INTESTINAL RESECTION [None]
  - SKIN GRAFT [None]
  - MUSCLE ATROPHY [None]
  - ENCEPHALOPATHY [None]
  - COMA [None]
  - THROMBOSIS [None]
  - AORTIC THROMBOSIS [None]
  - CHOLECYSTECTOMY [None]
  - PAIN [None]
  - CHOLECYSTITIS CHRONIC [None]
  - HEPATECTOMY [None]
  - AMNESIA [None]
  - HEPATIC INFARCTION [None]
